FAERS Safety Report 8257038-6 (Version None)
Quarter: 2012Q2

REPORT INFORMATION
  Report Type: 
  Country: None (occurrence: None)
  Receive Date: 20120403
  Receipt Date: 20120322
  Transmission Date: 20120825
  Serious: Yes (Death)
  Sender: FDA-Public Use
  Company Number: IE-GLAXOSMITHKLINE-B0755360A

PATIENT
  Age: 18 Year
  Sex: Female

DRUGS (4)
  1. LAMICTAL [Suspect]
     Indication: AFFECTIVE DISORDER
     Dosage: 25MG ALTERNATE DAYS
     Route: 065
     Dates: start: 20100302
  2. SEROQUEL [Suspect]
     Indication: AFFECTIVE DISORDER
     Dosage: 100MG PER DAY
     Route: 048
     Dates: start: 20100324
  3. PAROXETINE HYDROCHLORIDE [Suspect]
     Indication: POST-TRAUMATIC STRESS DISORDER
     Dosage: 30MG PER DAY
     Route: 065
     Dates: start: 20100309, end: 20100616
  4. HEROIN [Suspect]
     Indication: PRODUCT USED FOR UNKNOWN INDICATION
     Route: 065

REACTIONS (2)
  - INTENTIONAL OVERDOSE [None]
  - PERIPHERAL COLDNESS [None]
